FAERS Safety Report 5837963-3 (Version None)
Quarter: 2008Q3

REPORT INFORMATION
  Report Type: 
  Country: None (occurrence: None)
  Receive Date: 20080808
  Receipt Date: 20071221
  Transmission Date: 20090109
  Serious: No
  Sender: FDA-Public Use
  Company Number: A0700304A

PATIENT
  Age: 34 Year
  Sex: Male

DRUGS (3)
  1. PAROXETINE HCL [Suspect]
     Indication: ANXIETY DISORDER
     Dosage: 40MG PER DAY
     Route: 048
     Dates: start: 20040201, end: 20060201
  2. LISINOPRIL [Concomitant]
  3. XANAX [Concomitant]

REACTIONS (4)
  - DRUG ADMINISTRATION ERROR [None]
  - HEART RATE DECREASED [None]
  - LIBIDO DECREASED [None]
  - SEXUAL DYSFUNCTION [None]
